FAERS Safety Report 9010122 (Version 1)
Quarter: 2013Q1

REPORT INFORMATION
  Report Type: Spontaneous
  Country: US (occurrence: US)
  Receive Date: 20130111
  Receipt Date: 20130111
  Transmission Date: 20140127
  Serious: No
  Sender: FDA-Public Use
  Company Number: US-GALDERMA-US12415626

PATIENT
  Age: 12 Year
  Sex: Female

DRUGS (1)
  1. DIFFERIN [Suspect]
     Indication: PRODUCT USED FOR UNKNOWN INDICATION
     Route: 061
     Dates: start: 201209

REACTIONS (1)
  - Dry skin [Unknown]
